FAERS Safety Report 9859243 (Version 1)
Quarter: 2014Q1

REPORT INFORMATION
  Report Type: Spontaneous
  Country: US (occurrence: US)
  Receive Date: 20140131
  Receipt Date: 20140131
  Transmission Date: 20141002
  Serious: Yes (Other)
  Sender: FDA-Public Use
  Company Number: US-PFIZER INC-2014027704

PATIENT
  Sex: Male

DRUGS (1)
  1. PREPARATION H HEMORRHOIDAL SUPPOSITORIES [Suspect]
     Dosage: UNK

REACTIONS (6)
  - Diabetes mellitus [Unknown]
  - Hypertension [Unknown]
  - Thyroid disorder [Unknown]
  - Prostatomegaly [Unknown]
  - Pollakiuria [Unknown]
  - Cardiac disorder [Unknown]
